FAERS Safety Report 11031485 (Version 2)
Quarter: 2015Q3

REPORT INFORMATION
  Report Type: Spontaneous
  Country: US (occurrence: US)
  Receive Date: 20150415
  Receipt Date: 20150714
  Transmission Date: 20151125
  Serious: Yes (Hospitalization)
  Sender: FDA-Public Use
  Company Number: US-PFIZER INC-2015125926

PATIENT
  Age: 71 Year
  Sex: Female
  Weight: 58 kg

DRUGS (12)
  1. CALCIUM [Concomitant]
     Active Substance: CALCIUM
     Dosage: UNK
  2. PROLIA [Concomitant]
     Active Substance: DENOSUMAB
     Dosage: UNK (50 MINUTES INFUSION THAT LAST 2 TIMES BECAUSE IN EVERY SIX MONTHS)
     Dates: start: 2013
  3. SIMVASTATIN. [Concomitant]
     Active Substance: SIMVASTATIN
     Indication: BLOOD CHOLESTEROL ABNORMAL
     Dosage: 20 MG, UNK
     Dates: start: 2014
  4. XELJANZ [Suspect]
     Active Substance: TOFACITINIB CITRATE
     Indication: RHEUMATOID ARTHRITIS
     Dosage: 5 MG, 2X/DAY
     Dates: start: 201310
  5. PREDNISONE. [Concomitant]
     Active Substance: PREDNISONE
     Dosage: 5 MG, UNK
  6. FUROSEMIDE. [Concomitant]
     Active Substance: FUROSEMIDE
     Dosage: 20 MG, UNK
  7. FOLIC ACID. [Concomitant]
     Active Substance: FOLIC ACID
     Dosage: UNK
  8. PREDNISONE. [Concomitant]
     Active Substance: PREDNISONE
     Dosage: 10 MG, UNK
  9. LISINOPRIL. [Concomitant]
     Active Substance: LISINOPRIL
     Indication: BLOOD PRESSURE ABNORMAL
     Dosage: 40 MG, UNK
  10. PREDNISONE. [Concomitant]
     Active Substance: PREDNISONE
     Indication: RHEUMATOID ARTHRITIS
     Dosage: 120 MG, UNK
     Dates: start: 201502
  11. PREDNISONE. [Concomitant]
     Active Substance: PREDNISONE
     Dosage: 60 MG, UNK
  12. FOSAMAX [Concomitant]
     Active Substance: ALENDRONATE SODIUM
     Dosage: UNK
     Dates: start: 2010

REACTIONS (2)
  - Muscular weakness [Not Recovered/Not Resolved]
  - Dysstasia [Not Recovered/Not Resolved]
